FAERS Safety Report 4545908-1 (Version None)
Quarter: 2005Q1

REPORT INFORMATION
  Report Type: 
  Country: None (occurrence: None)
  Receive Date: 20050103
  Receipt Date: 20041220
  Transmission Date: 20050727
  Serious: Yes (Hospitalization, Other)
  Sender: FDA-Public Use
  Company Number: 2004116373

PATIENT
  Sex: Female

DRUGS (5)
  1. DILANTIN [Suspect]
     Indication: EPILEPSY
     Dosage: ORAL
     Route: 048
     Dates: end: 20041220
  2. DILANTIN [Suspect]
     Indication: CONVULSION
     Dosage: 300 MG, ORAL
     Route: 048
     Dates: start: 20041219, end: 20041220
  3. VALPROATE SODIUM [Suspect]
     Indication: CONVULSION
     Dosage: 750 MG (250 MG, 3 IN 1 D), ORAL
     Route: 048
     Dates: start: 20030101
  4. ALL OTHER  NON-THERAPEUTIC PRODUCTS (ALL OTHER NON-THERAPEUTIC PRODUCT [Suspect]
     Indication: ILL-DEFINED DISORDER
     Dosage: ORAL
     Route: 048
     Dates: start: 20030101
  5. LORAZEPAM [Concomitant]

REACTIONS (6)
  - ALLERGY TO CHEMICALS [None]
  - CONVULSION [None]
  - DRUG HYPERSENSITIVITY [None]
  - DRUG TOXICITY [None]
  - REACTION TO COLOURING [None]
  - SKIN DISCOLOURATION [None]
